FAERS Safety Report 22001646 (Version 2)
Quarter: 2023Q1

REPORT INFORMATION
  Report Type: Report from Study
  Country: US (occurrence: US)
  Receive Date: 20230216
  Receipt Date: 20230228
  Transmission Date: 20230418
  Serious: Yes (Other)
  Sender: FDA-Public Use
  Company Number: US-BAYER-2023P009554

PATIENT
  Age: 53 Year
  Sex: Female
  Weight: 160.54 kg

DRUGS (6)
  1. ADEMPAS [Suspect]
     Active Substance: RIOCIGUAT
     Indication: Pulmonary arterial hypertension
     Dosage: UNK
     Dates: start: 20230117
  2. ADEMPAS [Suspect]
     Active Substance: RIOCIGUAT
     Indication: Pulmonary arterial hypertension
     Dosage: 1.0 MG, TID
     Route: 048
  3. ADEMPAS [Suspect]
     Active Substance: RIOCIGUAT
     Indication: Pulmonary arterial hypertension
     Dosage: 1.5 MG, TID
     Route: 048
  4. ADEMPAS [Suspect]
     Active Substance: RIOCIGUAT
     Indication: Pulmonary arterial hypertension
     Dosage: 1 MG, TID
     Route: 048
  5. UPTRAVI [Concomitant]
     Active Substance: SELEXIPAG
     Dosage: UNK
  6. OPSUMIT [Concomitant]
     Active Substance: MACITENTAN
     Dosage: UNK

REACTIONS (17)
  - Migraine [Not Recovered/Not Resolved]
  - Syncope [None]
  - Renal disorder [None]
  - Seizure [None]
  - Paraesthesia oral [None]
  - Hypoaesthesia oral [None]
  - Middle ear effusion [Not Recovered/Not Resolved]
  - Ear pruritus [None]
  - Nasal pruritus [None]
  - Chest pain [None]
  - Dyspnoea [None]
  - Dyspnoea exertional [None]
  - Fatigue [None]
  - Pain [None]
  - Dizziness [Not Recovered/Not Resolved]
  - Nausea [Not Recovered/Not Resolved]
  - Oedema peripheral [None]

NARRATIVE: CASE EVENT DATE: 20230101
